FAERS Safety Report 6481568-0 (Version None)
Quarter: 2009Q4

REPORT INFORMATION
  Report Type: 
  Country: None (occurrence: None)
  Receive Date: 20091123
  Receipt Date: 20090902
  Transmission Date: 20100525
  Serious: No
  Sender: FDA-Public Use
  Company Number: 8051445

PATIENT
  Age: 33 Year
  Sex: Female
  Weight: 34.4 kg

DRUGS (4)
  1. CIMZIA [Suspect]
     Indication: CROHN'S DISEASE
     Dosage: 400 MG /M SC
     Route: 058
     Dates: start: 20081221
  2. CIPRO [Concomitant]
  3. FLAGYL [Concomitant]
  4. DIFLUCAN [Concomitant]

REACTIONS (4)
  - CHEST DISCOMFORT [None]
  - FATIGUE [None]
  - OCULAR HYPERAEMIA [None]
  - POSTNASAL DRIP [None]
